FAERS Safety Report 23100401 (Version 1)
Quarter: 2023Q4

REPORT INFORMATION
  Report Type: Spontaneous
  Country: CN (occurrence: CN)
  Receive Date: 20231024
  Receipt Date: 20231024
  Transmission Date: 20240109
  Serious: Yes (Other)
  Sender: FDA-Public Use
  Company Number: CN-PFIZER INC-PV202300172936

PATIENT
  Age: 41 Year
  Sex: Male
  Weight: 76 kg

DRUGS (2)
  1. CYTARABINE [Suspect]
     Active Substance: CYTARABINE
     Indication: Acute myeloid leukaemia
     Dosage: 5500 MG, 2X/DAY
     Dates: start: 20230828, end: 20230829
  2. CYTARABINE [Suspect]
     Active Substance: CYTARABINE
     Dosage: 5500 MG, 2X/DAY
     Dates: start: 20230831, end: 20230831

REACTIONS (4)
  - Asthenia [Recovering/Resolving]
  - Pyrexia [Recovering/Resolving]
  - Rash [Recovering/Resolving]
  - Pruritus [Recovering/Resolving]

NARRATIVE: CASE EVENT DATE: 20230831
